FAERS Safety Report 5512179-9 (Version None)
Quarter: 2007Q4

REPORT INFORMATION
  Report Type: 
  Country: None (occurrence: None)
  Receive Date: 20071112
  Receipt Date: 20071104
  Transmission Date: 20080405
  Serious: Yes (Other)
  Sender: FDA-Public Use
  Company Number: PHEH2007US14421

PATIENT

DRUGS (1)
  1. SANDOSTATIN LAR [Suspect]
     Dosage: Q2WEEKS
     Dates: start: 20040101

REACTIONS (4)
  - ARTHRALGIA [None]
  - DIARRHOEA [None]
  - GASTROINTESTINAL PAIN [None]
  - SURGERY [None]
